FAERS Safety Report 5167903-4 (Version None)
Quarter: 2006Q4

REPORT INFORMATION
  Report Type: 
  Country: None (occurrence: None)
  Receive Date: 20061208
  Receipt Date: 20061201
  Transmission Date: 20070319
  Serious: Yes (Other)
  Sender: FDA-Public Use
  Company Number: US-JNJFOC-20061200900

PATIENT
  Sex: Female

DRUGS (14)
  1. INFLIXIMAB [Suspect]
     Indication: RHEUMATOID ARTHRITIS
     Route: 042
  2. HUMIRA [Concomitant]
  3. CARDURA [Concomitant]
  4. DIOVAN [Concomitant]
  5. DARVOCET-N 100 [Concomitant]
  6. VITAMIN CAP [Concomitant]
  7. TYLENOL [Concomitant]
  8. NEXIUM [Concomitant]
  9. PROTONIX [Concomitant]
  10. OSCAL [Concomitant]
  11. LASIX [Concomitant]
  12. POTASSIUM ACETATE [Concomitant]
  13. VYTORIN [Concomitant]
  14. QUININE SULFATE [Concomitant]

REACTIONS (1)
  - BASAL CELL CARCINOMA [None]
